FAERS Safety Report 8400269-2 (Version None)
Quarter: 2012Q2

REPORT INFORMATION
  Report Type: 
  Country: None (occurrence: None)
  Receive Date: 20120531
  Receipt Date: 20120525
  Transmission Date: 20120825
  Serious: Yes (Other)
  Sender: FDA-Public Use
  Company Number: US-ELI_LILLY_AND_COMPANY-US201010005935

PATIENT
  Sex: Male
  Weight: 127.44 kg

DRUGS (15)
  1. BYETTA [Suspect]
     Dosage: 5 UG, BID
     Dates: end: 20120523
  2. DILTIAZEM [Concomitant]
     Indication: BLOOD PRESSURE INCREASED
     Dosage: 360 MG, QD
  3. GLIMEPIRIDE [Concomitant]
     Indication: TYPE 2 DIABETES MELLITUS
     Dosage: UNK
  4. FUROSEMIDE [Concomitant]
     Indication: SWELLING
     Dosage: 40 MG, BID
     Route: 048
  5. PRAVASTATIN [Concomitant]
     Indication: BLOOD CHOLESTEROL INCREASED
     Dosage: UNK, QD
     Route: 048
  6. IBUPROFEN [Concomitant]
     Indication: PAIN
     Dosage: UNK
  7. METFORMIN HCL [Concomitant]
     Indication: TYPE 2 DIABETES MELLITUS
     Dosage: UNK
  8. LEVOTHYROXINE SODIUM [Concomitant]
     Indication: THYROIDECTOMY
     Dosage: 200 UG, QD
     Route: 048
  9. MICARDIS [Concomitant]
     Indication: BLOOD PRESSURE INCREASED
     Dosage: UNK, QD
     Route: 048
  10. OXYCODONE HYDROCHLORIDE [Concomitant]
     Indication: PAIN
     Dosage: UNK
  11. TYLENOL                                 /SCH/ [Concomitant]
     Indication: PAIN
     Dosage: UNK
  12. BYETTA [Suspect]
     Indication: TYPE 2 DIABETES MELLITUS
     Dosage: 5 UG, BID
     Dates: start: 20080101
  13. TERAZOSIN HCL [Concomitant]
     Indication: BLOOD PRESSURE INCREASED
     Dosage: 2 MG, QD
     Route: 048
  14. TRAMADOL HCL [Concomitant]
     Indication: PAIN
     Dosage: UNK
  15. BYETTA [Suspect]
     Dosage: 10 UG, BID
     Route: 058
     Dates: end: 20101001

REACTIONS (16)
  - BLOOD GLUCOSE INCREASED [None]
  - BLOOD GLUCOSE DECREASED [None]
  - VOMITING [None]
  - OEDEMA PERIPHERAL [None]
  - TUNNEL VISION [None]
  - NAUSEA [None]
  - INJURY ASSOCIATED WITH DEVICE [None]
  - THYROID CANCER [None]
  - BLOOD PRESSURE INCREASED [None]
  - TREMOR [None]
  - WEIGHT FLUCTUATION [None]
  - LETHARGY [None]
  - NECK DEFORMITY [None]
  - DYSPHAGIA [None]
  - FLUID RETENTION [None]
  - FATIGUE [None]
